FAERS Safety Report 9606628 (Version 2)
Quarter: 2013Q4

REPORT INFORMATION
  Report Type: Spontaneous
  Country: US (occurrence: US)
  Receive Date: 20131008
  Receipt Date: 20131008
  Transmission Date: 20140711
  Serious: No
  Sender: FDA-Public Use
  Company Number: US-AMGEN-USASP2013054557

PATIENT
  Age: 92 Year
  Sex: Female
  Weight: 117 kg

DRUGS (4)
  1. PROLIA [Suspect]
     Indication: OSTEOPOROSIS POSTMENOPAUSAL
     Dosage: 60 MG, Q6MO
     Route: 058
     Dates: start: 20111230
  2. DIOVAN [Concomitant]
  3. BABY ASPIRIN [Concomitant]
  4. VERAPAMIL                          /00014302/ [Concomitant]
     Indication: OSTEOPOROSIS POSTMENOPAUSAL
     Dosage: UNK
     Dates: start: 2012

REACTIONS (2)
  - Walking aid user [Unknown]
  - Fall [Unknown]
